FAERS Safety Report 13486121 (Version 1)
Quarter: 2017Q2

REPORT INFORMATION
  Report Type: Spontaneous
  Country: US (occurrence: US)
  Receive Date: 20170426
  Receipt Date: 20170426
  Transmission Date: 20170830
  Serious: Yes (Hospitalization)
  Sender: FDA-Public Use
  Company Number: US-VIFOR (INTERNATIONAL) INC.-VIT-2017-04403

PATIENT
  Age: 47 Year
  Sex: Male

DRUGS (8)
  1. VELTASSA [Suspect]
     Active Substance: PATIROMER
     Indication: HYPERKALAEMIA
     Route: 048
     Dates: start: 20160929
  2. OXYCODONE HYDROCHLORIDE. [Concomitant]
     Active Substance: OXYCODONE HYDROCHLORIDE
  3. CODEINE PHOSPHATE/ACETAMINOPHEN [Concomitant]
  4. FOLIC ACID. [Concomitant]
     Active Substance: FOLIC ACID
  5. SODIUM POLYSTYRENE SULFONATE. [Concomitant]
     Active Substance: SODIUM POLYSTYRENE SULFONATE
  6. LASIX [Concomitant]
     Active Substance: FUROSEMIDE
  7. RENAGEL [Concomitant]
     Active Substance: SEVELAMER HYDROCHLORIDE
  8. CITRIC ACID/SODIUM ACETATE [Concomitant]

REACTIONS (1)
  - Sickle cell anaemia [Unknown]

NARRATIVE: CASE EVENT DATE: 201702
